FAERS Safety Report 9282335 (Version 1)
Quarter: 2013Q2

REPORT INFORMATION
  Report Type: Spontaneous
  Country: BR (occurrence: BR)
  Receive Date: 20130510
  Receipt Date: 20130510
  Transmission Date: 20140414
  Serious: Yes (Other)
  Sender: FDA-Public Use
  Company Number: BR-PFIZER INC-2013143746

PATIENT
  Sex: Female

DRUGS (3)
  1. ZOLOFT [Suspect]
     Dosage: UNK
     Dates: start: 2010
  2. PURAN T4 [Concomitant]
     Indication: AUTOIMMUNE THYROIDITIS
     Dosage: UNK
     Dates: start: 201210
  3. RIVOTRIL [Concomitant]
     Indication: ANXIETY
     Dosage: UNK

REACTIONS (4)
  - Coeliac disease [Unknown]
  - Weight increased [Not Recovered/Not Resolved]
  - Fat tissue increased [Not Recovered/Not Resolved]
  - Lactose intolerance [Unknown]
